FAERS Safety Report 11729788 (Version 1)
Quarter: 2015Q4

REPORT INFORMATION
  Report Type: Spontaneous
  Country: US (occurrence: US)
  Receive Date: 20151112
  Receipt Date: 20151112
  Transmission Date: 20160304
  Serious: No
  Sender: FDA-Public Use
  Company Number: US-009507513-1511USA003129

PATIENT
  Sex: Female

DRUGS (2)
  1. BELSOMRA [Suspect]
     Active Substance: SUVOREXANT
     Indication: INSOMNIA
     Dosage: 20 MG, QD
     Route: 048
     Dates: start: 201509, end: 2015
  2. BELSOMRA [Suspect]
     Active Substance: SUVOREXANT
     Dosage: 40 MG, QD
     Route: 048
     Dates: start: 2015, end: 2015

REACTIONS (4)
  - Drug ineffective [Unknown]
  - Drug effect decreased [Unknown]
  - Off label use [Unknown]
  - Overdose [Unknown]

NARRATIVE: CASE EVENT DATE: 2015
